FAERS Safety Report 6925378-6 (Version None)
Quarter: 2010Q3

REPORT INFORMATION
  Report Type: 
  Country: None (occurrence: None)
  Receive Date: 20100816
  Receipt Date: 20100805
  Transmission Date: 20110219
  Serious: Yes (Other)
  Sender: FDA-Public Use
  Company Number: US-JNJFOC-20100802666

PATIENT
  Sex: Male
  Weight: 33.2 kg

DRUGS (4)
  1. REMICADE [Suspect]
     Indication: CROHN'S DISEASE
     Route: 042
  2. 5-ASA [Concomitant]
     Route: 065
  3. PREVACID [Concomitant]
     Route: 065
  4. PEPTAMEN [Concomitant]
     Route: 065

REACTIONS (1)
  - ADVERSE DRUG REACTION [None]
